FAERS Safety Report 7068911-9 (Version None)
Quarter: 2010Q4

REPORT INFORMATION
  Report Type: 
  Country: None (occurrence: None)
  Receive Date: 20101028
  Receipt Date: 20101019
  Transmission Date: 20110411
  Serious: Yes (Hospitalization)
  Sender: FDA-Public Use
  Company Number: GB-PERRIGO-10GB013992

PATIENT
  Age: 72 Year
  Sex: Male

DRUGS (6)
  1. NAPROXEN SODIUM 12063/0054 250 MG [Suspect]
     Indication: GOUT
     Dosage: UNK
     Route: 048
  2. ASPIRIN [Suspect]
     Indication: PROPHYLAXIS
     Dosage: UNK
     Route: 048
  3. FUROSEMIDE [Concomitant]
     Dosage: 80 MG, QD
     Route: 048
  4. GLICLAZIDE [Concomitant]
     Indication: TYPE 2 DIABETES MELLITUS
     Dosage: 80 MG, BID
     Route: 048
  5. METFORMIN [Concomitant]
     Indication: TYPE 2 DIABETES MELLITUS
     Dosage: 500 MG, TID
     Route: 048
  6. RAMIPRIL [Concomitant]
     Dosage: 2.5 MG, QD
     Route: 048

REACTIONS (2)
  - GASTRIC ULCER [None]
  - MELAENA [None]
